FAERS Safety Report 25424980 (Version 1)
Quarter: 2025Q2

REPORT INFORMATION
  Report Type: Spontaneous
  Country: CN (occurrence: CN)
  Receive Date: 20250611
  Receipt Date: 20250611
  Transmission Date: 20250717
  Serious: Yes (Other)
  Sender: PFIZER
  Company Number: CN-PFIZER INC-PV202500069253

PATIENT
  Age: 41 Year
  Sex: Female

DRUGS (4)
  1. EPIRUBICIN HYDROCHLORIDE [Suspect]
     Active Substance: EPIRUBICIN HYDROCHLORIDE
     Indication: Chemotherapy
     Dosage: 130 MG, 1X/DAY. D1/Q21D
     Route: 041
     Dates: start: 20250429, end: 20250429
  2. EPIRUBICIN HYDROCHLORIDE [Suspect]
     Active Substance: EPIRUBICIN HYDROCHLORIDE
     Indication: Invasive breast carcinoma
  3. PACLITAXEL [Suspect]
     Active Substance: PACLITAXEL
     Indication: Chemotherapy
     Dosage: 300 MG, 1X/DAY. D1/Q21D
     Route: 041
     Dates: start: 20250429, end: 20250429
  4. PACLITAXEL [Suspect]
     Active Substance: PACLITAXEL
     Indication: Invasive breast carcinoma

REACTIONS (1)
  - Hepatic function abnormal [Not Recovered/Not Resolved]

NARRATIVE: CASE EVENT DATE: 20250519
